FAERS Safety Report 22630466 (Version 4)
Quarter: 2023Q4

REPORT INFORMATION
  Report Type: Spontaneous
  Country: US (occurrence: US)
  Receive Date: 20230622
  Receipt Date: 20231213
  Transmission Date: 20240109
  Serious: Yes (Other)
  Sender: FDA-Public Use
  Company Number: US-BRISTOL-MYERS SQUIBB COMPANY-2023-087371

PATIENT
  Age: 69 Year
  Sex: Female
  Weight: 60.78 kg

DRUGS (2)
  1. POMALYST [Suspect]
     Active Substance: POMALIDOMIDE
     Indication: Plasma cell myeloma
     Dosage: FREQUENCY: DAILY FOR 21DAYS
     Route: 048
     Dates: start: 20230401, end: 20230610
  2. POMALYST [Suspect]
     Active Substance: POMALIDOMIDE
     Dosage: 3W,1W OFF?1X DAILY FOR 21 DAYS AND 7 DAYS OFF
     Route: 048

REACTIONS (4)
  - Streptococcal infection [Unknown]
  - Mass [Unknown]
  - Gastrointestinal disorder [Unknown]
  - Illness [Unknown]
